FAERS Safety Report 8962161 (Version 2)
Quarter: 2012Q4

REPORT INFORMATION
  Report Type: 
  Country: US (occurrence: US)
  Receive Date: 20121212
  Receipt Date: 20121214
  Transmission Date: 20130627
  Serious: No
  Sender: FDA-Public Use
  Company Number: US-PFIZER INC-2012311173

PATIENT
  Age: 53 Year
  Sex: Female
  Weight: 49 kg

DRUGS (1)
  1. ADVIL [Suspect]
     Indication: PAIN
     Dosage: 600 mg two times a day (3 tablets of 200mg at a time)
     Route: 048
     Dates: start: 20121130, end: 20121210

REACTIONS (2)
  - Incorrect dose administered [Unknown]
  - Pruritus [Recovering/Resolving]
